FAERS Safety Report 8554269-2 (Version None)
Quarter: 2012Q3

REPORT INFORMATION
  Report Type: 
  Country: None (occurrence: None)
  Receive Date: 20120731
  Receipt Date: 20120716
  Transmission Date: 20120928
  Serious: No
  Sender: FDA-Public Use
  Company Number: US-ASTRAZENECA-2011SE61352

PATIENT
  Age: 56 Year
  Sex: Male

DRUGS (38)
  1. SEROQUEL [Suspect]
     Indication: BIPOLAR I DISORDER
     Route: 048
     Dates: start: 20090101
  2. PROPRANOLOL [Concomitant]
  3. N-ACETYL CYSTELNE [Concomitant]
     Indication: ROUTINE HEALTH MAINTENANCE
  4. SEROQUEL [Suspect]
     Route: 048
  5. PROPRANOLOL [Concomitant]
     Indication: ANXIETY
  6. PROPRANOLOL [Concomitant]
  7. JOINT MAINTAINRNCE FORMULA [Concomitant]
     Indication: ARTHRALGIA
  8. TRIAZOLAM [Concomitant]
     Indication: SLEEP DISORDER
  9. PROPRANOLOL [Concomitant]
  10. PROPRANOLOL [Concomitant]
  11. LORAZEPAM [Concomitant]
     Indication: MANIA
  12. LORAZEPAM [Concomitant]
  13. LOVAZA [Concomitant]
     Indication: AFFECTIVE DISORDER
  14. SEROQUEL [Suspect]
     Route: 048
  15. PROPRANOLOL [Concomitant]
  16. LORAZEPAM [Concomitant]
     Indication: PANIC DISORDER
  17. LORAZEPAM [Concomitant]
  18. MULTIVITAMIN + MINERAL [Concomitant]
  19. ASPIRIN [Concomitant]
     Indication: CARDIOVASCULAR EVENT PROPHYLAXIS
  20. SEROQUEL [Suspect]
     Route: 048
     Dates: start: 20110101
  21. LAMOTRIGINE [Concomitant]
     Indication: BIPOLAR I DISORDER
  22. PROPRANOLOL [Concomitant]
     Indication: PANIC DISORDER
  23. PROPRANOLOL [Concomitant]
  24. LORAZEPAM [Concomitant]
     Indication: POST-TRAUMATIC STRESS DISORDER
  25. UBLQUINOL COQH [Concomitant]
     Indication: MENTAL IMPAIRMENT
  26. ASPIRIN [Concomitant]
     Indication: THROMBOSIS PROPHYLAXIS
  27. ASPIRIN [Concomitant]
     Indication: CEREBROVASCULAR ACCIDENT PROPHYLAXIS
  28. SEROQUEL [Suspect]
     Indication: DEPRESSION
     Route: 048
     Dates: start: 20090101
  29. SEROQUEL [Suspect]
     Route: 048
     Dates: start: 20110101
  30. CEREFOLLNNAC [Concomitant]
     Indication: MEMORY IMPAIRMENT
  31. GABAPENTIN [Concomitant]
     Indication: SLEEP DISORDER
  32. PROPRANOLOL [Concomitant]
     Indication: MANIA
  33. PROPRANOLOL [Concomitant]
     Indication: POST-TRAUMATIC STRESS DISORDER
  34. PROPRANOLOL [Concomitant]
  35. LORAZEPAM [Concomitant]
  36. LISINOPRIL [Concomitant]
     Indication: BLOOD PRESSURE
  37. TESTOSTERONE CYPLONATE [Concomitant]
     Indication: BLOOD TESTOSTERONE DECREASED
  38. PROPRANOLOL [Concomitant]

REACTIONS (5)
  - BIPOLAR DISORDER [None]
  - DRUG INEFFECTIVE [None]
  - SOMNOLENCE [None]
  - DEPRESSION [None]
  - THERAPEUTIC RESPONSE UNEXPECTED [None]
